FAERS Safety Report 15591995 (Version 1)
Quarter: 2018Q4

REPORT INFORMATION
  Report Type: Spontaneous
  Country: US (occurrence: US)
  Receive Date: 20181106
  Receipt Date: 20181106
  Transmission Date: 20190205
  Serious: No
  Sender: FDA-Public Use
  Company Number: US-PERRIGO-17US027758

PATIENT
  Sex: Female

DRUGS (1)
  1. UNISOM SLEEPTABS [Suspect]
     Active Substance: DOXYLAMINE SUCCINATE
     Indication: INSOMNIA
     Dosage: 12.5 MG, TWICE IN 7 HOURS, PRN
     Route: 048
     Dates: start: 201710

REACTIONS (2)
  - Underdose [Unknown]
  - Heart rate increased [Unknown]

NARRATIVE: CASE EVENT DATE: 201710
